FAERS Safety Report 10042064 (Version 1)
Quarter: 2014Q1

REPORT INFORMATION
  Report Type: Spontaneous
  Country: IT (occurrence: IT)
  Receive Date: 20140327
  Receipt Date: 20140327
  Transmission Date: 20141002
  Serious: Yes (Other)
  Sender: FDA-Public Use
  Company Number: IT-SA-2014SA033719

PATIENT
  Age: 74 Year
  Sex: Male

DRUGS (1)
  1. ELOXATIN [Suspect]
     Indication: RECTAL CANCER
     Route: 042
     Dates: start: 20131007, end: 20131021

REACTIONS (7)
  - Hypertensive crisis [Recovering/Resolving]
  - Respiratory disorder [Recovering/Resolving]
  - Diarrhoea [Recovering/Resolving]
  - Hypersensitivity [Recovering/Resolving]
  - Erythema [Recovering/Resolving]
  - Pruritus [Recovering/Resolving]
  - Pyrexia [Recovering/Resolving]
